FAERS Safety Report 14377503 (Version 1)
Quarter: 2018Q1

REPORT INFORMATION
  Report Type: Spontaneous
  Country: FR (occurrence: FR)
  Receive Date: 20180111
  Receipt Date: 20180111
  Transmission Date: 20180509
  Serious: Yes (Other)
  Sender: FDA-Public Use
  Company Number: FR-PFIZER INC-2018008250

PATIENT
  Age: 87 Year
  Sex: Male
  Weight: 78 kg

DRUGS (11)
  1. NOVORAPID [Concomitant]
     Active Substance: INSULIN ASPART
     Indication: INSULIN-REQUIRING TYPE 2 DIABETES MELLITUS
     Dosage: UNK, AS NEEDED
     Route: 058
  2. INNOHEP [Concomitant]
     Active Substance: TINZAPARIN SODIUM
     Dosage: 14000 IU, ONCE DAILY
     Route: 058
  3. MOCLAMINE [Concomitant]
     Active Substance: MOCLOBEMIDE
     Dosage: 300 MG, DAILY (1-0-1)
     Route: 048
  4. EUPANTOL [Concomitant]
     Active Substance: PANTOPRAZOLE SODIUM
     Dosage: 20 MG, ONCE DAILY (0-0-1)
     Route: 048
  5. CREON [Concomitant]
     Active Substance: PANCRELIPASE AMYLASE\PANCRELIPASE LIPASE\PANCRELIPASE PROTEASE
     Dosage: 50000 IU, DAILY (1-0-1)
     Route: 048
  6. LASILIX FAIBLE [Concomitant]
     Active Substance: FUROSEMIDE
     Dosage: 20 MG, ONCE DAILY (1-0-0)
     Route: 048
  7. CARBOPLATINE HOSPIRA [Suspect]
     Active Substance: CARBOPLATIN
     Indication: BRONCHIAL CARCINOMA
     Dosage: 210 MG, CYCLIC (J1 TO J3 ACCORDING TO PROTOCOL)
     Route: 042
     Dates: start: 20170726, end: 20171023
  8. ETOPOSIDE MYLAN [Suspect]
     Active Substance: ETOPOSIDE
     Indication: BRONCHIAL CARCINOMA
     Dosage: 100 MG, CYCLIC (J1 TO J3 ACCORDING TO PROTOCOL)
     Route: 042
     Dates: start: 20170726, end: 20171023
  9. ALPRAZOLAM MYLAN [Concomitant]
     Active Substance: ALPRAZOLAM
     Dosage: 0.50 MG, DAILY (1-0-1)
     Route: 048
  10. ABASAGLAR [Concomitant]
     Active Substance: INSULIN GLARGINE
     Indication: INSULIN-REQUIRING TYPE 2 DIABETES MELLITUS
     Dosage: 14 IU, ONCE DAILY (MORNING)
     Route: 058
  11. SECTRAL [Concomitant]
     Active Substance: ACEBUTOLOL HYDROCHLORIDE
     Dosage: 200 MG, DAILY (1/2-0-1/2)
     Route: 048

REACTIONS (4)
  - Urticaria [Recovered/Resolved]
  - Drug hypersensitivity [Recovered/Resolved]
  - Face oedema [Recovered/Resolved]
  - Cardiac failure [Recovered/Resolved]

NARRATIVE: CASE EVENT DATE: 20171023
